FAERS Safety Report 8617075-6 (Version None)
Quarter: 2012Q3

REPORT INFORMATION
  Report Type: 
  Country: None (occurrence: None)
  Receive Date: 20120823
  Receipt Date: 20120815
  Transmission Date: 20120928
  Serious: No
  Sender: FDA-Public Use
  Company Number: US-009507513-1208USA007118

PATIENT

DRUGS (2)
  1. SAPHRIS [Suspect]
     Dosage: 5 MG, QPM
     Dates: start: 20120101
  2. KLONOPIN [Concomitant]

REACTIONS (5)
  - FEELING ABNORMAL [None]
  - GAIT DISTURBANCE [None]
  - VERTIGO [None]
  - FEELING DRUNK [None]
  - UNDERDOSE [None]
